FAERS Safety Report 13101129 (Version 1)
Quarter: 2017Q1

REPORT INFORMATION
  Report Type: Spontaneous
  Country: US (occurrence: US)
  Receive Date: 20170110
  Receipt Date: 20170110
  Transmission Date: 20170428
  Serious: Yes (Hospitalization)
  Sender: FDA-Public Use
  Company Number: None

PATIENT
  Age: 2 Year
  Sex: Male
  Weight: 13.2 kg

DRUGS (4)
  1. ONCASPAR [Suspect]
     Active Substance: PEGASPARGASE
     Dates: end: 20161216
  2. VINCRISTINE SULFATE. [Concomitant]
     Active Substance: VINCRISTINE SULFATE
     Dates: end: 20161223
  3. CYCLOPHOSPHAMIDE. [Suspect]
     Active Substance: CYCLOPHOSPHAMIDE
     Dates: end: 20161202
  4. CYTARABINE. [Suspect]
     Active Substance: CYTARABINE
     Dates: end: 20161212

REACTIONS (20)
  - Pulmonary congestion [None]
  - Heart sounds abnormal [None]
  - Coronavirus test positive [None]
  - Bacteraemia [None]
  - Anaemia [None]
  - Cough [None]
  - Diarrhoea [None]
  - Hepatomegaly [None]
  - Cardiomyopathy [None]
  - Hypophagia [None]
  - Respiratory rate increased [None]
  - Pyrexia [None]
  - Abdominal distension [None]
  - Thrombocytopenia [None]
  - Clostridium test positive [None]
  - Viral infection [None]
  - Depressed level of consciousness [None]
  - Malaise [None]
  - Blood pressure decreased [None]
  - Ascites [None]

NARRATIVE: CASE EVENT DATE: 20161226
